FAERS Safety Report 17751652 (Version 1)
Quarter: 2020Q2

REPORT INFORMATION
  Report Type: Spontaneous
  Country: US (occurrence: US)
  Receive Date: 20200506
  Receipt Date: 20200506
  Transmission Date: 20200714
  Serious: No
  Sender: FDA-Public Use
  Company Number: US-PFIZER INC-2020180703

PATIENT
  Age: 57 Year
  Sex: Female
  Weight: 86.18 kg

DRUGS (1)
  1. DOFETILIDE. [Suspect]
     Active Substance: DOFETILIDE
     Indication: SINUS TACHYCARDIA
     Dosage: 500 UG, 2X/DAY
     Route: 048

REACTIONS (1)
  - Drug ineffective [Unknown]
